FAERS Safety Report 16092740 (Version 1)
Quarter: 2019Q1

REPORT INFORMATION
  Report Type: Spontaneous
  Country: US (occurrence: US)
  Receive Date: 20190319
  Receipt Date: 20190319
  Transmission Date: 20190418
  Serious: No
  Sender: FDA-Public Use
  Company Number: US-AMGEN-USASP2019038971

PATIENT
  Sex: Male

DRUGS (3)
  1. ATORVASTATIN;EZETIMIBE [Concomitant]
     Dosage: 80 MG/ 10 MG
  2. REPATHA [Suspect]
     Active Substance: EVOLOCUMAB
     Indication: ARTERIOSCLEROSIS
     Dosage: UNK, Q2WK
     Route: 065
  3. ATORVASTATIN;EZETIMIBE [Concomitant]
     Dosage: 40 MG/10 MG

REACTIONS (1)
  - Low density lipoprotein increased [Unknown]
